FAERS Safety Report 23285289 (Version 1)
Quarter: 2023Q4

REPORT INFORMATION
  Report Type: Spontaneous
  Country: FR (occurrence: None)
  Receive Date: 20231211
  Receipt Date: 20231211
  Transmission Date: 20240110
  Serious: Yes (Hospitalization)
  Sender: FDA-Public Use
  Company Number: 2023A276928

PATIENT
  Age: 7 Day
  Sex: Male
  Weight: 3.4 kg

DRUGS (1)
  1. BEYFORTUS [Suspect]
     Active Substance: NIRSEVIMAB-ALIP
     Indication: Respiratory syncytial virus immunisation
     Dosage: D10.5ML ONCE/SINGLE ADMINISTRATION
     Route: 030
     Dates: start: 20230923, end: 20230923

REACTIONS (3)
  - Abdominal distension [Recovered/Resolved]
  - Infantile spitting up [Recovered/Resolved]
  - Hypotonia neonatal [Recovered/Resolved]

NARRATIVE: CASE EVENT DATE: 20230923
